FAERS Safety Report 20611564 (Version 2)
Quarter: 2022Q2

REPORT INFORMATION
  Report Type: Spontaneous
  Country: MA (occurrence: MA)
  Receive Date: 20220318
  Receipt Date: 20220408
  Transmission Date: 20220721
  Serious: No
  Sender: FDA-Public Use
  Company Number: MA-PFIZER INC-202200208860

PATIENT
  Age: 16 Year
  Sex: Male

DRUGS (1)
  1. GENOTROPIN [Suspect]
     Active Substance: SOMATROPIN
     Dosage: 1.2 MG, DAILY
     Route: 058
     Dates: end: 20220202

REACTIONS (3)
  - Device malfunction [Unknown]
  - Device information output issue [Unknown]
  - Poor quality device used [Unknown]

NARRATIVE: CASE EVENT DATE: 20220202
